FAERS Safety Report 20390680 (Version 3)
Quarter: 2022Q2

REPORT INFORMATION
  Report Type: Report from Study
  Country: ES (occurrence: None)
  Receive Date: 20220128
  Receipt Date: 20220405
  Transmission Date: 20220721
  Serious: Yes (Hospitalization)
  Sender: FDA-Public Use
  Company Number: ES-ROCHE-3000732

PATIENT
  Age: 73 Year
  Sex: Female
  Weight: 55.7 kg

DRUGS (18)
  1. TIRAGOLUMAB [Suspect]
     Active Substance: TIRAGOLUMAB
     Indication: Metastatic neoplasm
     Dosage: DATE OF MOST RECENT DOSE (840 MG) OF STUDY DRUG PRIOR TO AE: 15/DEC/2021
     Route: 042
     Dates: start: 20211215
  2. ATEZOLIZUMAB [Suspect]
     Active Substance: ATEZOLIZUMAB
     Indication: Metastatic neoplasm
     Dosage: DATE OF MOST RECENT DOSE (1680 MG) OF STUDY DRUG PRIOR TO AE: 15/DEC/2021
     Route: 041
     Dates: start: 20211215
  3. POLYETHYLENE GLYCOLS [Concomitant]
     Active Substance: POLYETHYLENE GLYCOLS
     Indication: Constipation prophylaxis
     Dosage: GIVEN FOR PROPHYLAXIS IS YES ;ONGOING: YES
     Dates: start: 20181201
  4. ACETAMINOPHEN [Concomitant]
     Active Substance: ACETAMINOPHEN
     Indication: Tumour pain
     Dosage: YES
     Dates: start: 20211201
  5. FUROSEMIDE [Concomitant]
     Active Substance: FUROSEMIDE
     Indication: Prophylaxis
     Dosage: GIVEN FOR PROPHYLAXIS IS YES ;ONGOING: YES
     Dates: start: 20220104
  6. FUROSEMIDE [Concomitant]
     Active Substance: FUROSEMIDE
     Indication: Prophylaxis
  7. TRAMADOL [Concomitant]
     Active Substance: TRAMADOL
     Indication: Tumour pain
     Dosage: YES
     Dates: start: 20220104
  8. METAMIZOL [Concomitant]
     Active Substance: METAMIZOLE SODIUM
     Indication: Tumour pain
     Dosage: YES
     Dates: start: 20220104
  9. LACTULOSE [Concomitant]
     Active Substance: LACTULOSE
     Indication: Constipation
     Route: 048
     Dates: start: 20220111, end: 20220113
  10. LACTULOSE [Concomitant]
     Active Substance: LACTULOSE
     Route: 048
     Dates: start: 20220117, end: 20220120
  11. HUMANT ALBUMIN [Concomitant]
     Route: 042
     Dates: start: 20220111, end: 20220113
  12. DEXAMETHASONE [Concomitant]
     Active Substance: DEXAMETHASONE
     Route: 042
     Dates: start: 20220111, end: 20220114
  13. DEXAMETHASONE [Concomitant]
     Active Substance: DEXAMETHASONE
     Route: 048
     Dates: start: 20220115, end: 20220120
  14. MORPHINE [Concomitant]
     Active Substance: MORPHINE
     Indication: Tumour pain
     Route: 048
     Dates: start: 20220112, end: 20220117
  15. OMEPRAZOLE [Concomitant]
     Active Substance: OMEPRAZOLE
     Route: 042
     Dates: start: 20220112, end: 20220115
  16. OXYCODONE [Concomitant]
     Active Substance: OXYCODONE
     Indication: Tumour pain
     Route: 048
     Dates: start: 20220114, end: 20220117
  17. FENTANYL [Concomitant]
     Active Substance: FENTANYL
     Indication: Tumour pain
     Dates: start: 20220117, end: 20220117
  18. FENTANYL [Concomitant]
     Active Substance: FENTANYL
     Dates: start: 20220120, end: 20220120

REACTIONS (1)
  - General physical health deterioration [Recovered/Resolved]

NARRATIVE: CASE EVENT DATE: 20220111
